FAERS Safety Report 23134234 (Version 1)
Quarter: 2023Q4

REPORT INFORMATION
  Report Type: Spontaneous
  Country: None (occurrence: DE)
  Receive Date: 20231101
  Receipt Date: 20231101
  Transmission Date: 20240109
  Serious: Yes (Death, Hospitalization, Other)
  Sender: FDA-Public Use
  Company Number: DE-B.Braun Medical Inc.-2147670

PATIENT
  Age: 73 Year
  Sex: Female
  Weight: 64 kg

DRUGS (27)
  1. DEXTROSE [Suspect]
     Active Substance: DEXTROSE\DEXTROSE MONOHYDRATE
     Indication: Parenteral nutrition
     Route: 042
  2. HEPARIN [Suspect]
     Active Substance: HEPARIN SODIUM
  3. CARBIMAZOLE [Suspect]
     Active Substance: CARBIMAZOLE
  4. PANTOZOL [Suspect]
     Active Substance: PANTOPRAZOLE SODIUM
  5. DIMETHINDENE [Suspect]
     Active Substance: DIMETHINDENE
  6. CIPROFLOXACIN [Suspect]
     Active Substance: CIPROFLOXACIN
  7. MCP [Suspect]
     Active Substance: METOCLOPRAMIDE HYDROCHLORIDE
  8. INSULIN NOS [Suspect]
     Active Substance: INSULIN NOS
  9. PREDNISOLONE SODIUM SUCCINATE [Suspect]
     Active Substance: PREDNISOLONE SODIUM SUCCINATE
  10. CIPROFLOXACIN [Suspect]
     Active Substance: CIPROFLOXACIN
  11. METRONIDAZOLE [Suspect]
     Active Substance: METRONIDAZOLE
  12. PENTAZOCINE [Suspect]
     Active Substance: PENTAZOCINE
  13. MEZLOCILLIN SODIUM [Suspect]
     Active Substance: MEZLOCILLIN SODIUM
  14. AMINO ACIDS\DEXTROSE\ELECTROLYTES NOS [Suspect]
     Active Substance: AMINO ACIDS\DEXTROSE\ELECTROLYTES NOS
  15. PANTOZOL [Suspect]
     Active Substance: PANTOPRAZOLE SODIUM
  16. LOPERAMIDE [Suspect]
     Active Substance: LOPERAMIDE
  17. ETILEFRINE [Suspect]
     Active Substance: ETILEFRINE
  18. OMEPRAZOLE [Suspect]
     Active Substance: OMEPRAZOLE
  19. HYMECROMONE [Suspect]
     Active Substance: HYMECROMONE
  20. DIMENHYDRINATE [Suspect]
     Active Substance: DIMENHYDRINATE
  21. DIMETHINDENE [Suspect]
     Active Substance: DIMETHINDENE
  22. PREDNISOLONE SODIUM SUCCINATE [Suspect]
     Active Substance: PREDNISOLONE SODIUM SUCCINATE
  23. ALDACTONE [Suspect]
     Active Substance: SPIRONOLACTONE
  24. KALIUMKLORID [Concomitant]
  25. Jonosteril [Concomitant]
  26. SODIUM CHLORIDE [Concomitant]
     Active Substance: SODIUM CHLORIDE
  27. POTASSIUM CHLORIDE [Concomitant]
     Active Substance: POTASSIUM CHLORIDE

REACTIONS (11)
  - Toxic epidermal necrolysis [None]
  - Circulatory collapse [None]
  - Cardiac arrest [None]
  - Stevens-Johnson syndrome [None]
  - Pruritus [None]
  - Conjunctivitis [None]
  - Lip erosion [None]
  - Rash [None]
  - Skin lesion [None]
  - Blister [None]
  - Skin exfoliation [None]
